FAERS Safety Report 5460975-9 (Version None)
Quarter: 2007Q3

REPORT INFORMATION
  Report Type: 
  Country: None (occurrence: None)
  Receive Date: 20070822
  Receipt Date: 20061028
  Transmission Date: 20080115
  Serious: Yes (Other)
  Sender: FDA-Public Use
  Company Number: 2006096316

PATIENT
  Sex: Male
  Weight: 81.6475 kg

DRUGS (6)
  1. NORVASC [Suspect]
     Indication: BLOOD PRESSURE ABNORMAL
     Dosage: (2.5 MG); A YEAR AGO
  2. ZOCOR [Concomitant]
  3. NEXIUM [Concomitant]
  4. ASPIRIN [Concomitant]
  5. ANTIINFLAMMATORY AGENTS, OPHTHALMIC (ANTIINFLAMMATORY AGENTS, OPHTALMI [Concomitant]
  6. ATENOLOL [Concomitant]

REACTIONS (2)
  - HEART RATE IRREGULAR [None]
  - PALPITATIONS [None]
